FAERS Safety Report 10195567 (Version 1)
Quarter: 2014Q2

REPORT INFORMATION
  Report Type: Spontaneous
  Country: US (occurrence: US)
  Receive Date: 20140527
  Receipt Date: 20140527
  Transmission Date: 20141212
  Serious: Yes (Hospitalization)
  Sender: FDA-Public Use
  Company Number: PHHY2014US059179

PATIENT
  Age: 33 Year
  Sex: Female

DRUGS (3)
  1. ZOLPIDEM [Suspect]
     Indication: INSOMNIA
     Dosage: 10 MG, QD
  2. ZOLPIDEM [Suspect]
     Dosage: 40 MG, UNK
  3. CLONAZEPAM [Concomitant]
     Indication: INSOMNIA

REACTIONS (15)
  - Paranoia [Recovering/Resolving]
  - Suicidal ideation [Recovering/Resolving]
  - Disorientation [Recovering/Resolving]
  - Derealisation [Recovering/Resolving]
  - Gaze palsy [Recovered/Resolved]
  - Depressed mood [Recovering/Resolving]
  - Schizoaffective disorder [Recovered/Resolved]
  - Condition aggravated [Recovered/Resolved]
  - Tremor [Recovering/Resolving]
  - Hallucination, visual [Recovered/Resolved]
  - Illusion [Recovering/Resolving]
  - Hallucination, auditory [Recovering/Resolving]
  - Insomnia [Recovering/Resolving]
  - Visual impairment [Recovered/Resolved]
  - Incorrect dose administered [Unknown]
